FAERS Safety Report 9080144 (Version 1)
Quarter: 2013Q1

REPORT INFORMATION
  Report Type: Report from Study
  Country: US (occurrence: US)
  Receive Date: 20130130
  Receipt Date: 20130130
  Transmission Date: 20140127
  Serious: No
  Sender: FDA-Public Use
  Company Number: US-ABBOTT-12P-163-0960182-00

PATIENT
  Sex: Female
  Weight: 149.82 kg

DRUGS (11)
  1. HUMIRA 40 MG/ 0.8 ML PRE-FILLED SYRINGE [Suspect]
     Indication: SPINAL OSTEOARTHRITIS
     Dates: start: 20120312
  2. HUMIRA 40 MG/ 0.8 ML PRE-FILLED SYRINGE [Suspect]
     Dates: start: 20120723
  3. LISINOPRIL [Concomitant]
     Indication: HYPERTENSION
  4. UNKNOWN MEDICATION [Concomitant]
     Indication: DIABETES MELLITUS
  5. SULFASALAZINE [Concomitant]
     Indication: SPINAL OSTEOARTHRITIS
  6. METHADONE [Concomitant]
     Indication: SPINAL OSTEOARTHRITIS
  7. NORCO [Concomitant]
     Indication: SPINAL OSTEOARTHRITIS
  8. PRADAXA [Concomitant]
     Indication: HEART RATE IRREGULAR
  9. GENERIC EFFEXOR [Concomitant]
     Indication: DEPRESSION
  10. VITAMIN D [Concomitant]
     Indication: VITAMIN SUPPLEMENTATION
  11. CRANBERRY SUPPLEMENT [Concomitant]
     Indication: SUPPLEMENTATION THERAPY

REACTIONS (2)
  - Off label use [Not Recovered/Not Resolved]
  - Pain [Not Recovered/Not Resolved]
